FAERS Safety Report 10763835 (Version 2)
Quarter: 2015Q1

REPORT INFORMATION
  Report Type: Report from Study
  Country: GB (occurrence: GB)
  Receive Date: 20150204
  Receipt Date: 20150224
  Transmission Date: 20150721
  Serious: Yes (Other)
  Sender: FDA-Public Use
  Company Number: GB-SA-2015SA011229

PATIENT
  Age: 61 Year
  Sex: Male

DRUGS (6)
  1. METOPROLOL [Concomitant]
     Active Substance: METOPROLOL
     Indication: CORONARY ARTERY DISEASE
  2. WARFARIN [Concomitant]
     Active Substance: WARFARIN
  3. RAMIPRIL. [Concomitant]
     Active Substance: RAMIPRIL
  4. SIMVASTATIN. [Concomitant]
     Active Substance: SIMVASTATIN
  5. MULTAQ [Suspect]
     Active Substance: DRONEDARONE
     Indication: ATRIAL FIBRILLATION
     Route: 065
     Dates: start: 20100901, end: 20141126
  6. DOFETILIDE [Concomitant]
     Active Substance: DOFETILIDE
     Indication: ATRIAL FLUTTER

REACTIONS (2)
  - Angiogram abnormal [Unknown]
  - Electrocardiogram ambulatory abnormal [Unknown]
